FAERS Safety Report 19816820 (Version 1)
Quarter: 2021Q3

REPORT INFORMATION
  Report Type: Spontaneous
  Country: HR (occurrence: HR)
  Receive Date: 20210910
  Receipt Date: 20210910
  Transmission Date: 20211014
  Serious: Yes (Death, Life-Threatening, Hospitalization, Other)
  Sender: FDA-Public Use
  Company Number: HR-B.I. PHARMACEUTICALS,INC./RIDGEFIELD-2021-BI-125818

PATIENT
  Age: 86 Year
  Sex: Male

DRUGS (9)
  1. ATORIS [Concomitant]
     Active Substance: ATORVASTATIN CALCIUM
     Indication: PRODUCT USED FOR UNKNOWN INDICATION
  2. CONCOR COR [Concomitant]
     Active Substance: BISOPROLOL FUMARATE
     Indication: PRODUCT USED FOR UNKNOWN INDICATION
  3. DUODART [Concomitant]
     Active Substance: DUTASTERIDE\TAMSULOSIN
     Indication: PRODUCT USED FOR UNKNOWN INDICATION
  4. PRAXITEN [Concomitant]
     Active Substance: OXAZEPAM
     Indication: PRODUCT USED FOR UNKNOWN INDICATION
  5. PRADAXA [Suspect]
     Active Substance: DABIGATRAN ETEXILATE MESYLATE
     Dates: start: 20210712
  6. ZOFECARD [Concomitant]
     Indication: PRODUCT USED FOR UNKNOWN INDICATION
  7. COVID?19 VACCINE [Concomitant]
     Indication: COVID-19 IMMUNISATION
     Dosage: 2 DOSES
  8. PRADAXA [Suspect]
     Active Substance: DABIGATRAN ETEXILATE MESYLATE
     Indication: ATRIAL FIBRILLATION
     Dates: end: 20210703
  9. AMLOPIN [AMLODIPINE] [Concomitant]
     Indication: PRODUCT USED FOR UNKNOWN INDICATION

REACTIONS (4)
  - Loss of consciousness [Recovered/Resolved]
  - Large intestinal ulcer haemorrhage [Recovered/Resolved]
  - Pulmonary embolism [Fatal]
  - Shock haemorrhagic [Recovered/Resolved]

NARRATIVE: CASE EVENT DATE: 20210704
